FAERS Safety Report 9469372 (Version 2)
Quarter: 2015Q4

REPORT INFORMATION
  Report Type: Report from Study
  Country: US (occurrence: US)
  Receive Date: 20130821
  Receipt Date: 20151210
  Transmission Date: 20160305
  Serious: Yes (Other)
  Sender: FDA-Public Use
  Company Number: US-ROCHE-1261498

PATIENT
  Age: 47 Year
  Sex: Female

DRUGS (13)
  1. AVASTIN [Suspect]
     Active Substance: BEVACIZUMAB
     Indication: OVARIAN CANCER
     Route: 042
     Dates: start: 20130710
  2. NORMAL SALINE [Concomitant]
     Active Substance: SODIUM CHLORIDE
     Route: 065
  3. D5W .5NS W KCL [Concomitant]
     Dosage: 50CC
     Route: 065
  4. HEPARIN [Concomitant]
     Active Substance: HEPARIN SODIUM
     Dosage: 500 U
     Route: 065
  5. AVASTIN [Suspect]
     Active Substance: BEVACIZUMAB
     Route: 042
     Dates: start: 20120217
  6. TYLENOL [Concomitant]
     Active Substance: ACETAMINOPHEN
     Route: 042
  7. ALOXI [Concomitant]
     Active Substance: PALONOSETRON HYDROCHLORIDE
     Route: 042
  8. DECADRON [Concomitant]
     Active Substance: DEXAMETHASONE
     Route: 042
  9. BENADRYL [Concomitant]
     Active Substance: DIPHENHYDRAMINE HYDROCHLORIDE
     Route: 042
  10. PROCRIT [Concomitant]
     Active Substance: ERYTHROPOIETIN
     Dosage: UNITS
     Route: 058
  11. VICODIN [Concomitant]
     Active Substance: ACETAMINOPHEN\HYDROCODONE BITARTRATE
     Dosage: EVERY 4-6 HRS
     Route: 065
  12. GEMZAR [Concomitant]
     Active Substance: GEMCITABINE HYDROCHLORIDE
     Route: 042
  13. DOXORUBICIN [Concomitant]
     Active Substance: DOXORUBICIN
     Route: 042

REACTIONS (13)
  - Anaemia [Unknown]
  - Ascites [Unknown]
  - Pain in extremity [Unknown]
  - Haemoglobin decreased [Unknown]
  - Fluid retention [Unknown]
  - Fatigue [Unknown]
  - Skin disorder [Unknown]
  - Weight decreased [Unknown]
  - Constipation [Unknown]
  - Musculoskeletal pain [Unknown]
  - Toxicity to various agents [Unknown]
  - Abdominal pain [Unknown]
  - Back pain [Unknown]

NARRATIVE: CASE EVENT DATE: 20130322
